FAERS Safety Report 24172779 (Version 1)
Quarter: 2024Q3

REPORT INFORMATION
  Report Type: Spontaneous
  Country: CA (occurrence: CA)
  Receive Date: 20240805
  Receipt Date: 20240805
  Transmission Date: 20241016
  Serious: Yes (Death, Hospitalization, Other)
  Sender: AUROBINDO
  Company Number: CA-AUROBINDO-AUR-APL-2024-037818

PATIENT
  Age: 72 Year
  Sex: Male

DRUGS (6)
  1. AMLODIPINE [Suspect]
     Active Substance: AMLODIPINE BESYLATE
     Indication: Product used for unknown indication
     Dosage: UNK
     Route: 048
  2. LOVASTATIN [Suspect]
     Active Substance: LOVASTATIN
     Indication: Product used for unknown indication
     Dosage: UNK
     Route: 048
  3. SANDOSTATIN [Suspect]
     Active Substance: OCTREOTIDE ACETATE
     Indication: Gastroenteropancreatic neuroendocrine tumour disease
     Dosage: 60 MILLIGRAM (1 EVERY 1 MONTHS)
     Route: 030
  4. SANDOSTATIN [Suspect]
     Active Substance: OCTREOTIDE ACETATE
     Indication: Carcinoid tumour
     Dosage: 30 MILLIGRAM (1 EVERY 1 MONTHS)
     Route: 030
  5. ASPIRIN [Concomitant]
     Active Substance: ASPIRIN
     Indication: Product used for unknown indication
     Dosage: UNK
     Route: 065
  6. ASPIRIN [Concomitant]
     Active Substance: ASPIRIN
     Indication: Product used for unknown indication
     Dosage: UNK
     Route: 048

REACTIONS (15)
  - Asthenia [Fatal]
  - Blood pressure systolic increased [Fatal]
  - Death [Fatal]
  - Decreased appetite [Fatal]
  - Erythema [Fatal]
  - Gait disturbance [Fatal]
  - Gastric ulcer [Fatal]
  - Injection site pain [Fatal]
  - Lethargy [Fatal]
  - Mobility decreased [Fatal]
  - Needle issue [Fatal]
  - Pulmonary mass [Fatal]
  - Sciatica [Fatal]
  - Weight decreased [Fatal]
  - Incorrect dose administered [Fatal]
